FAERS Safety Report 19629440 (Version 1)
Quarter: 2021Q3

REPORT INFORMATION
  Report Type: Spontaneous
  Country: US (occurrence: US)
  Receive Date: 20210729
  Receipt Date: 20210729
  Transmission Date: 20211014
  Serious: No
  Sender: FDA-Public Use
  Company Number: US-MYLANLABS-2021M1043248

PATIENT
  Sex: Female
  Weight: 61 kg

DRUGS (3)
  1. FENTANYL TRANSDERMAL SYSTEM [Suspect]
     Active Substance: FENTANYL
     Indication: NECK PAIN
     Dosage: 75 MICROGRAM, QH (EVERY 78 HOURS)
     Route: 062
  2. FENTANYL TRANSDERMAL SYSTEM [Suspect]
     Active Substance: FENTANYL
     Indication: ARTHRALGIA
  3. FENTANYL TRANSDERMAL SYSTEM [Suspect]
     Active Substance: FENTANYL
     Indication: OESOPHAGEAL PAIN

REACTIONS (2)
  - Product adhesion issue [Not Recovered/Not Resolved]
  - Wrong technique in product usage process [Unknown]
